FAERS Safety Report 10558293 (Version 1)
Quarter: 2014Q4

REPORT INFORMATION
  Report Type: Spontaneous
  Country: DE (occurrence: None)
  Receive Date: 20141029
  Receipt Date: 20141029
  Transmission Date: 20150529
  Serious: Yes (Hospitalization, Other)
  Sender: FDA-Public Use
  Company Number: DE2014GSK006420

PATIENT
  Sex: Female

DRUGS (3)
  1. DOLUTEGRAVIR (DOLUTEGRAVIR) UNKNOWN [Suspect]
     Active Substance: DOLUTEGRAVIR
     Indication: HIV INFECTION
     Route: 048
  2. SERTRALINE [Concomitant]
     Active Substance: SERTRALINE HYDROCHLORIDE
  3. TRUVADA (TRUVADA) UNKNOWN [Concomitant]

REACTIONS (2)
  - Alcohol abuse [None]
  - Alcohol detoxification [None]

NARRATIVE: CASE EVENT DATE: 20140901
